FAERS Safety Report 4934988-7 (Version None)
Quarter: 2006Q1

REPORT INFORMATION
  Report Type: 
  Country: None (occurrence: None)
  Receive Date: 20060127
  Receipt Date: 20051203
  Transmission Date: 20060701
  Serious: Yes (Other)
  Sender: FDA-Public Use
  Company Number: 2005163640

PATIENT

DRUGS (2)
  1. LYRICA [Suspect]
     Indication: ILL-DEFINED DISORDER
  2. NEURONTIN [Suspect]
     Indication: ILL-DEFINED DISORDER

REACTIONS (1)
  - INCREASED APPETITE [None]
